FAERS Safety Report 6655323-2 (Version None)
Quarter: 2010Q1

REPORT INFORMATION
  Report Type: 
  Country: None (occurrence: None)
  Receive Date: 20100329
  Receipt Date: 20100317
  Transmission Date: 20100710
  Serious: Yes (Other)
  Sender: FDA-Public Use
  Company Number: IN-PFIZER INC-2010034824

PATIENT
  Age: 57 Year
  Sex: Female

DRUGS (1)
  1. SUTENT [Suspect]
     Indication: GASTROINTESTINAL STROMAL TUMOUR
     Dosage: 50 MG, 1X/DAY, FOR 28 DAYS EVERY 6 WEEKLY 28/42 DAYS
     Route: 048

REACTIONS (2)
  - BLOOD COUNT ABNORMAL [None]
  - HAEMOGLOBIN DECREASED [None]
